FAERS Safety Report 9300274 (Version 1)
Quarter: 2012Q4

REPORT INFORMATION
  Report Type: Spontaneous
  Country: US (occurrence: None)
  Receive Date: 20121109
  Receipt Date: 20121109
  Transmission Date: 20130627
  Serious: Yes (Other)
  Sender: FDA-Public Use
  Company Number: 2012S1000214

PATIENT
  Age: 42 Year
  Sex: Male

DRUGS (4)
  1. CUBICIN [Suspect]
     Indication: GRAM-POSITIVE ROD INFECTION
  2. AMPICILLIN [Suspect]
  3. GENTAMICIN [Concomitant]
  4. NAFCILLIN [Concomitant]

REACTIONS (10)
  - Sepsis [None]
  - Cardiogenic shock [None]
  - Toothache [None]
  - Haemoglobin decreased [None]
  - Haematocrit decreased [None]
  - Toxicologic test abnormal [None]
  - Renal infarct [None]
  - Mitral valve sclerosis [None]
  - Endocarditis [None]
  - Aortic valve disease [None]
